FAERS Safety Report 7274031-0 (Version None)
Quarter: 2011Q1

REPORT INFORMATION
  Report Type: 
  Country: None (occurrence: None)
  Receive Date: 20110203
  Receipt Date: 20110126
  Transmission Date: 20110831
  Serious: Yes (Hospitalization, Other)
  Sender: FDA-Public Use
  Company Number: US-AMGEN-USASP2011004951

PATIENT
  Age: 60 Year
  Sex: Female

DRUGS (2)
  1. ENBREL [Suspect]
     Indication: PSORIASIS
  2. ENBREL [Suspect]
     Indication: PSORIATIC ARTHROPATHY
     Dosage: 50 MG, QWK
     Dates: start: 20070601, end: 20101101

REACTIONS (7)
  - MYOCARDIAL INFARCTION [None]
  - PSORIASIS [None]
  - NASOPHARYNGITIS [None]
  - CHEST DISCOMFORT [None]
  - PARAESTHESIA [None]
  - MALAISE [None]
  - ATRIAL FIBRILLATION [None]
